FAERS Safety Report 23675941 (Version 1)
Quarter: 2024Q1

REPORT INFORMATION
  Report Type: Spontaneous
  Country: US (occurrence: US)
  Receive Date: 20240327
  Receipt Date: 20240327
  Transmission Date: 20240409
  Serious: Yes (Hospitalization, Other)
  Sender: FDA-Public Use
  Company Number: US-CADILA HEALTHCARE LIMITED-US-ZYDUS-104512

PATIENT

DRUGS (6)
  1. DEXMEDETOMIDINE [Suspect]
     Active Substance: DEXMEDETOMIDINE
     Indication: Hypertension
     Dosage: UNK
     Route: 065
  2. ETOMIDATE [Suspect]
     Active Substance: ETOMIDATE
     Indication: Hypertension
     Dosage: UNK
     Route: 065
  3. FENTANYL [Suspect]
     Active Substance: FENTANYL\FENTANYL CITRATE
     Indication: Hypertension
     Dosage: UNK
     Route: 065
  4. LABETALOL HYDROCHLORIDE [Suspect]
     Active Substance: LABETALOL HYDROCHLORIDE
     Indication: Hypertension
     Dosage: UNK
     Route: 042
  5. SUCCINYLCHOLINE CHLORIDE [Suspect]
     Active Substance: SUCCINYLCHOLINE CHLORIDE
     Indication: Hypertension
     Dosage: UNK
     Route: 065
  6. PROPOFOL [Suspect]
     Active Substance: PROPOFOL
     Indication: Hypertension
     Dosage: UNK
     Route: 065

REACTIONS (2)
  - Phaeochromocytoma crisis [Recovered/Resolved]
  - Drug ineffective [Unknown]
